FAERS Safety Report 6678128-5 (Version None)
Quarter: 2010Q2

REPORT INFORMATION
  Report Type: 
  Country: None (occurrence: None)
  Receive Date: 20100412
  Receipt Date: 20100407
  Transmission Date: 20101027
  Serious: Yes (Hospitalization)
  Sender: FDA-Public Use
  Company Number: US-MERCK-1004USA00715

PATIENT
  Age: 89 Year
  Sex: Female

DRUGS (6)
  1. FOSAMAX [Suspect]
     Route: 048
  2. ALENDRONATE SODIUM [Suspect]
     Route: 048
  3. ALENDRONATE SODIUM [Suspect]
     Route: 048
  4. ALENDRONATE SODIUM [Suspect]
     Route: 048
  5. ALENDRONATE SODIUM [Suspect]
     Route: 048
  6. ALENDRONATE SODIUM [Suspect]
     Route: 048

REACTIONS (2)
  - DRUG INEFFECTIVE [None]
  - FEMUR FRACTURE [None]
